FAERS Safety Report 9971044 (Version 2)
Quarter: 2014Q1

REPORT INFORMATION
  Report Type: Report from Study
  Country: US (occurrence: US)
  Receive Date: 20140306
  Receipt Date: 20140306
  Transmission Date: 20141002
  Serious: No
  Sender: FDA-Public Use
  Company Number: US-ABBVIE-13P-163-1131155-00

PATIENT
  Sex: Male

DRUGS (7)
  1. HUMIRA [Suspect]
     Indication: COLITIS ULCERATIVE
     Dates: start: 20130623
  2. ASACOL HD [Concomitant]
     Indication: COLITIS ULCERATIVE
  3. FERROUS SULFATE [Concomitant]
     Indication: ANAEMIA
  4. FOLIC ACID [Concomitant]
     Indication: COLITIS ULCERATIVE
     Dosage: 1 MG DAILY
  5. PANTOPRAZOLE [Concomitant]
     Indication: COLITIS ULCERATIVE
     Dosage: 40 MG DAILY
  6. MULTIVITAMIN [Concomitant]
     Indication: PRODUCT USED FOR UNKNOWN INDICATION
     Dosage: DAILY
  7. VITAMIN B1 [Concomitant]
     Indication: ANAEMIA
     Dosage: 100 MG DAILY

REACTIONS (5)
  - Eating disorder symptom [Recovering/Resolving]
  - Vomiting [Recovering/Resolving]
  - Retching [Recovering/Resolving]
  - Abdominal discomfort [Recovering/Resolving]
  - Skin lesion [Recovering/Resolving]
